FAERS Safety Report 9387624 (Version 1)
Quarter: 2013Q3

REPORT INFORMATION
  Report Type: Spontaneous
  Country: EG (occurrence: EG)
  Receive Date: 20130708
  Receipt Date: 20130708
  Transmission Date: 20140515
  Serious: Yes (Other)
  Sender: FDA-Public Use
  Company Number: EG-JNJFOC-20130620930

PATIENT
  Sex: 0

DRUGS (5)
  1. DOXORUBICIN HYDROCHLORIDE [Suspect]
     Indication: NEUROBLASTOMA
     Dosage: DAY 1 FOR 6-8 CYCLES
     Route: 042
  2. CYCLOPHOSPHAMIDE [Suspect]
     Indication: NEUROBLASTOMA
     Dosage: DAY 1 FOR 6-8 CYCLES
     Route: 065
  3. VINCRISTINE [Suspect]
     Indication: NEUROBLASTOMA
     Dosage: DAY 1 FOR 6-8 CYCLES
     Route: 065
  4. CARBOPLATIN [Suspect]
     Indication: NEUROBLASTOMA
     Dosage: DAY 1 TO 5
     Route: 065
  5. ETOPOSIDE [Suspect]
     Indication: NEUROBLASTOMA
     Dosage: DAY 1 TO 5
     Route: 065

REACTIONS (2)
  - Haemorrhage [Unknown]
  - Off label use [Unknown]
